FAERS Safety Report 20916935 (Version 2)
Quarter: 2022Q3

REPORT INFORMATION
  Report Type: Spontaneous
  Country: US (occurrence: US)
  Receive Date: 20220606
  Receipt Date: 20220711
  Transmission Date: 20221027
  Serious: Yes (Other)
  Sender: FDA-Public Use
  Company Number: US-PFIZER INC-202200785957

PATIENT
  Sex: Female

DRUGS (2)
  1. METRONIDAZOLE [Suspect]
     Active Substance: METRONIDAZOLE
     Indication: Osteomyelitis
     Dosage: UNK
     Dates: start: 202110
  2. CEFDINIR [Suspect]
     Active Substance: CEFDINIR
     Indication: Osteomyelitis
     Dosage: UNK
     Dates: start: 202110

REACTIONS (2)
  - Atrial fibrillation [Unknown]
  - Tremor [Unknown]

NARRATIVE: CASE EVENT DATE: 20211001
